FAERS Safety Report 20914085 (Version 3)
Quarter: 2022Q2

REPORT INFORMATION
  Report Type: Spontaneous
  Country: US (occurrence: US)
  Receive Date: 20220604
  Receipt Date: 20220629
  Transmission Date: 20220721
  Serious: No
  Sender: FDA-Public Use
  Company Number: US-SA-SAC20220520002236

PATIENT
  Age: 48 Year
  Sex: Female

DRUGS (4)
  1. DUPIXENT [Suspect]
     Active Substance: DUPILUMAB
     Indication: Dermatitis atopic
     Dosage: 300 MG, QOW
     Route: 058
     Dates: start: 20210712
  2. DUPIXENT [Suspect]
     Active Substance: DUPILUMAB
     Indication: Seasonal allergy
  3. TRIAMCINOLONE [Concomitant]
     Active Substance: TRIAMCINOLONE
     Indication: Dermatitis atopic
     Dosage: 0.59 B/D
     Route: 061
  4. ZYRTECNO [Concomitant]
     Indication: Seasonal allergy
     Dosage: 10 MG
     Route: 048

REACTIONS (6)
  - Skin burning sensation [Recovered/Resolved]
  - Dermatitis atopic [Recovered/Resolved]
  - Erythema [Not Recovered/Not Resolved]
  - Pruritus [Recovered/Resolved]
  - Illness [Not Recovered/Not Resolved]
  - Product use in unapproved indication [Unknown]

NARRATIVE: CASE EVENT DATE: 20220401
